FAERS Safety Report 7241492-2 (Version None)
Quarter: 2011Q1

REPORT INFORMATION
  Report Type: 
  Country: None (occurrence: None)
  Receive Date: 20110120
  Receipt Date: 20110120
  Transmission Date: 20110831
  Serious: No
  Sender: FDA-Public Use
  Company Number: None

PATIENT
  Age: 64 Year
  Sex: Male
  Weight: 65.318 kg

DRUGS (2)
  1. SESTAMIBI [Suspect]
     Indication: MYOCARDIAL ISCHAEMIA
     Dosage: IV BOLUS
     Route: 040
  2. SESTAMIBI [Suspect]
     Indication: CARDIOVASCULAR EVALUATION
     Dosage: IV BOLUS
     Route: 040

REACTIONS (1)
  - GUILLAIN-BARRE SYNDROME [None]
